FAERS Safety Report 13869886 (Version 5)
Quarter: 2017Q4

REPORT INFORMATION
  Report Type: Report from Study
  Country: US (occurrence: US)
  Receive Date: 20170815
  Receipt Date: 20171017
  Transmission Date: 20180320
  Serious: Yes (Hospitalization, Other)
  Sender: FDA-Public Use
  Company Number: US-GILEAD-2017-0287570

PATIENT
  Age: 66 Year
  Sex: Female

DRUGS (10)
  1. AMBRISENTAN [Suspect]
     Active Substance: AMBRISENTAN
     Indication: PULMONARY ARTERIAL HYPERTENSION
     Dosage: 5 MG, QD
     Route: 065
     Dates: start: 20160819
  2. PROZAC [Concomitant]
     Active Substance: FLUOXETINE HYDROCHLORIDE
  3. NEURONTIN [Concomitant]
     Active Substance: GABAPENTIN
  4. ADCIRCA [Concomitant]
     Active Substance: TADALAFIL
  5. ASPIRIN                            /00002701/ [Concomitant]
     Active Substance: ASPIRIN
  6. IRON [Concomitant]
     Active Substance: IRON
  7. LASIX [Concomitant]
     Active Substance: FUROSEMIDE
  8. POTASSIUM [Concomitant]
     Active Substance: POTASSIUM
  9. ALDACTONE [Concomitant]
     Active Substance: SPIRONOLACTONE
  10. PRILOSEC [Concomitant]
     Active Substance: OMEPRAZOLE MAGNESIUM

REACTIONS (4)
  - Pulmonary arterial hypertension [Not Recovered/Not Resolved]
  - Dyspnoea [Unknown]
  - Lymphadenopathy [Unknown]
  - Lung transplant [Unknown]

NARRATIVE: CASE EVENT DATE: 20170819
